FAERS Safety Report 23547686 (Version 1)
Quarter: 2024Q1

REPORT INFORMATION
  Report Type: Spontaneous
  Country: CN (occurrence: CN)
  Receive Date: 20240221
  Receipt Date: 20240221
  Transmission Date: 20240410
  Serious: Yes (Other)
  Sender: FDA-Public Use
  Company Number: CN-SUN PHARMACEUTICAL INDUSTRIES LTD-2024R1-432486

PATIENT
  Age: 62 Year
  Sex: Female
  Weight: 44 kg

DRUGS (6)
  1. GIMERACIL\OTERACIL\TEGAFUR [Suspect]
     Active Substance: GIMERACIL\OTERACIL POTASSIUM\TEGAFUR
     Indication: Gastric cancer stage IV
     Dosage: UNK (40 MG (DAYS 1-14))
     Route: 065
     Dates: start: 202007, end: 202012
  2. GIMERACIL\OTERACIL\TEGAFUR [Suspect]
     Active Substance: GIMERACIL\OTERACIL POTASSIUM\TEGAFUR
     Dosage: UNK (40 MG DAYS 1-14)
     Route: 065
     Dates: start: 202101
  3. OXALIPLATIN [Suspect]
     Active Substance: OXALIPLATIN
     Indication: Gastric cancer stage IV
     Dosage: UNK (150 MG)
     Route: 065
     Dates: start: 202007, end: 202012
  4. OXALIPLATIN [Suspect]
     Active Substance: OXALIPLATIN
     Dosage: UNK (130 MG)
     Route: 065
     Dates: start: 20220509
  5. SINTILIMAB [Concomitant]
     Active Substance: SINTILIMAB
     Indication: Gastric cancer stage IV
     Dosage: UNK (200 MG)
     Route: 065
  6. PACLITAXEL [Concomitant]
     Active Substance: PACLITAXEL
     Indication: Gastric cancer stage IV
     Dosage: UNK (200 MG (DAYS 1-8))
     Route: 065

REACTIONS (1)
  - Hydronephrosis [Recovered/Resolved]
